FAERS Safety Report 13757197 (Version 1)
Quarter: 2017Q3

REPORT INFORMATION
  Report Type: Spontaneous
  Country: US (occurrence: US)
  Receive Date: 20170714
  Receipt Date: 20170714
  Transmission Date: 20171127
  Serious: Yes (Disabling)
  Sender: FDA-Public Use
  Company Number: None

PATIENT
  Age: 68 Year
  Sex: Female
  Weight: 51.75 kg

DRUGS (1)
  1. ALPRAZOLAM. [Suspect]
     Active Substance: ALPRAZOLAM
     Indication: SLEEP DISORDER
     Dates: start: 19980901, end: 20170714

REACTIONS (5)
  - Quality of life decreased [None]
  - Vomiting [None]
  - Headache [None]
  - Crying [None]
  - Anxiety [None]

NARRATIVE: CASE EVENT DATE: 20150901
